FAERS Safety Report 8429401-1 (Version None)
Quarter: 2012Q2

REPORT INFORMATION
  Report Type: 
  Country: None (occurrence: None)
  Receive Date: 20120612
  Receipt Date: 20120604
  Transmission Date: 20120825
  Serious: Yes (Hospitalization)
  Sender: FDA-Public Use
  Company Number: DE-B.I. PHARMACEUTICALS,INC./RIDGEFIELD-2012-DE-01326DE

PATIENT
  Sex: Male
  Weight: 80 kg

DRUGS (8)
  1. PANTOPRAZOLE [Concomitant]
     Dosage: 20 MG
     Route: 048
  2. ALLOPURINOL [Concomitant]
     Dosage: 100 MG
     Route: 048
  3. BISOPROLOL FUMARATE [Concomitant]
     Dosage: 2.5 MG
     Route: 048
  4. XARELTO [Suspect]
     Dosage: 10 MG
     Route: 048
     Dates: start: 20120509, end: 20120514
  5. RELIX 2.5 [Concomitant]
     Dosage: 1.25 MG
     Route: 048
  6. LEVOTHYROXINE SODIUM [Concomitant]
     Dosage: 125 MCG
     Route: 048
  7. PRADAXA [Suspect]
     Indication: ATRIAL FIBRILLATION
     Dosage: 220 MG
     Route: 048
     Dates: start: 20120418, end: 20120508
  8. PRADAXA [Suspect]
     Indication: CEREBROVASCULAR ACCIDENT

REACTIONS (2)
  - FALL [None]
  - HAEMORRHAGE [None]
